FAERS Safety Report 4663409-7 (Version None)
Quarter: 2005Q2

REPORT INFORMATION
  Report Type: 
  Country: None (occurrence: None)
  Receive Date: 20050517
  Receipt Date: 20050506
  Transmission Date: 20051028
  Serious: Yes (Hospitalization)
  Sender: FDA-Public Use
  Company Number: US-AMGEN-US131857

PATIENT
  Sex: Male

DRUGS (13)
  1. ENBREL [Suspect]
     Indication: RHEUMATOID ARTHRITIS
     Route: 058
     Dates: start: 20030509
  2. METHOTREXATE [Concomitant]
     Route: 048
     Dates: start: 20030509
  3. PREDNISONE [Concomitant]
  4. FOSAMAX [Concomitant]
     Route: 048
     Dates: start: 20030725
  5. ATENOLOL [Concomitant]
  6. ZESTRIL [Concomitant]
     Route: 048
  7. ASPIRIN [Concomitant]
     Route: 048
  8. ACIPHEX [Concomitant]
     Route: 048
  9. MULTI-VITAMINS [Concomitant]
  10. VITAMIN E [Concomitant]
  11. COENZYME Q10 [Concomitant]
  12. COD-LIVER OIL [Concomitant]
  13. UNSPECIFIED MEDICATION [Concomitant]

REACTIONS (2)
  - BLOOD PRESSURE INCREASED [None]
  - PERICARDITIS [None]
